FAERS Safety Report 13374134 (Version 1)
Quarter: 2017Q1

REPORT INFORMATION
  Report Type: Spontaneous
  Country: US (occurrence: US)
  Receive Date: 20170325
  Receipt Date: 20170325
  Transmission Date: 20170429
  Serious: Yes (Other)
  Sender: FDA-Public Use
  Company Number: None

PATIENT
  Age: 68 Year
  Sex: Male
  Weight: 92.94 kg

DRUGS (1)
  1. EMPAGLIFLOZIN [Suspect]
     Active Substance: EMPAGLIFLOZIN
     Indication: DIABETES MELLITUS
     Route: 048
     Dates: start: 20170216, end: 20170309

REACTIONS (7)
  - Burning sensation [None]
  - Feeling hot [None]
  - Erythema [None]
  - Peripheral swelling [None]
  - Muscle tightness [None]
  - Musculoskeletal disorder [None]
  - Pain in extremity [None]

NARRATIVE: CASE EVENT DATE: 20170309
